FAERS Safety Report 4298966-6 (Version None)
Quarter: 2004Q1

REPORT INFORMATION
  Report Type: 
  Country: None (occurrence: None)
  Receive Date: 20040219
  Receipt Date: 20020730
  Transmission Date: 20041129
  Serious: Yes (Hospitalization)
  Sender: FDA-Public Use
  Company Number: PHRM2002FR02022

PATIENT
  Age: 14 Year
  Sex: Male

DRUGS (1)
  1. FRACTAL [Suspect]
     Indication: HYPERCHOLESTEROLAEMIA
     Dosage: 20 MG, QOD
     Route: 048
     Dates: start: 20010101

REACTIONS (1)
  - CHORIORETINITIS [None]
